FAERS Safety Report 10560822 (Version 1)
Quarter: 2014Q4

REPORT INFORMATION
  Report Type: Spontaneous
  Country: US (occurrence: US)
  Receive Date: 20141103
  Receipt Date: 20141103
  Transmission Date: 20150529
  Serious: Yes (Hospitalization, Other)
  Sender: FDA-Public Use
  Company Number: US-BRISTOL-MYERS SQUIBB COMPANY-21523139

PATIENT
  Age: 76 Year
  Sex: Female
  Weight: 70.3 kg

DRUGS (26)
  1. JAKAFI [Suspect]
     Active Substance: RUXOLITINIB
     Indication: MYELOFIBROSIS
     Dosage: TABS 15MG?DECREASED TO 5 MG TWICE DAILY-ONGOING?10 MG:JUL12-MAY14+5OCT13-UNK
     Route: 048
     Dates: start: 201202
  2. ONGLYZA [Concomitant]
     Active Substance: SAXAGLIPTIN HYDROCHLORIDE
  3. ALLOPURINOL. [Concomitant]
     Active Substance: ALLOPURINOL
  4. MULTIVITAMIN [Concomitant]
     Active Substance: VITAMINS
  5. CALTRATE WITH VITAMIN D [Concomitant]
     Active Substance: CALCIUM CARBONATE\VITAMIN D
  6. MUPIROCIN. [Concomitant]
     Active Substance: MUPIROCIN
  7. NITROSTAT [Concomitant]
     Active Substance: NITROGLYCERIN
  8. CALCIUM [Concomitant]
     Active Substance: CALCIUM
  9. NITROGLYCERIN. [Concomitant]
     Active Substance: NITROGLYCERIN
  10. METOPROLOL TARTRATE. [Concomitant]
     Active Substance: METOPROLOL TARTRATE
  11. MAGNESIUM [Concomitant]
     Active Substance: MAGNESIUM
  12. PROTONIX [Concomitant]
     Active Substance: PANTOPRAZOLE SODIUM
  13. TOPROL XL [Concomitant]
     Active Substance: METOPROLOL SUCCINATE
  14. TYLENOL [Concomitant]
     Active Substance: ACETAMINOPHEN
  15. COUMADIN [Suspect]
     Active Substance: WARFARIN SODIUM
  16. HYDROCODONE, ACETAMINOPHEN [Concomitant]
     Active Substance: ACETAMINOPHEN\HYDROCODONE BITARTRATE
  17. MULTAQ [Concomitant]
     Active Substance: DRONEDARONE
  18. ALBUTEROL. [Concomitant]
     Active Substance: ALBUTEROL
  19. ZYLOPRIM [Concomitant]
     Active Substance: ALLOPURINOL
  20. VITAMIN D [Concomitant]
     Active Substance: CHOLECALCIFEROL
  21. DULERA [Concomitant]
     Active Substance: FORMOTEROL FUMARATE DIHYDRATE\MOMETASONE FUROATE
  22. LASIX [Concomitant]
     Active Substance: FUROSEMIDE
  23. POTASSIUM [Concomitant]
     Active Substance: POTASSIUM
  24. ASPIRIN. [Suspect]
     Active Substance: ASPIRIN
  25. CALTRATE [Concomitant]
     Active Substance: CALCIUM CARBONATE
  26. PREDNISONE. [Concomitant]
     Active Substance: PREDNISONE

REACTIONS (10)
  - Pneumonia [Recovered/Resolved]
  - Bronchitis [Recovered/Resolved]
  - International normalised ratio increased [Unknown]
  - Cough [Unknown]
  - Blood creatinine increased [Unknown]
  - Abdominal wall haematoma [Recovered/Resolved]
  - Bacterial infection [Recovered/Resolved]
  - Blood urea increased [Unknown]
  - Soft tissue haemorrhage [Recovered/Resolved]
  - Blood count abnormal [Unknown]

NARRATIVE: CASE EVENT DATE: 2014
